FAERS Safety Report 24603586 (Version 1)
Quarter: 2024Q4

REPORT INFORMATION
  Report Type: Report from Study
  Country: US (occurrence: US)
  Receive Date: 20241111
  Receipt Date: 20241111
  Transmission Date: 20250114
  Serious: Yes (Hospitalization, Other)
  Sender: ASTELLAS
  Company Number: US-ASTELLAS-2024-AER-016359

PATIENT
  Sex: Male

DRUGS (1)
  1. XTANDI [Suspect]
     Active Substance: ENZALUTAMIDE
     Indication: Prostate cancer
     Route: 048
     Dates: start: 202309

REACTIONS (5)
  - Hallucination [Unknown]
  - Dizziness [Unknown]
  - Balance disorder [Unknown]
  - Dysarthria [Unknown]
  - Tinnitus [Unknown]
